FAERS Safety Report 20306566 (Version 3)
Quarter: 2023Q1

REPORT INFORMATION
  Report Type: Spontaneous
  Country: AU (occurrence: AU)
  Receive Date: 20220106
  Receipt Date: 20230106
  Transmission Date: 20230418
  Serious: Yes (Death, Other)
  Sender: FDA-Public Use
  Company Number: AU-GILEAD-2022-0564324

PATIENT
  Age: 59 Year

DRUGS (1)
  1. YESCARTA [Suspect]
     Active Substance: AXICABTAGENE CILOLEUCEL
     Indication: Diffuse large B-cell lymphoma
     Dosage: UNK
     Route: 042
     Dates: start: 20211220, end: 20211220

REACTIONS (2)
  - Fungal infection [Fatal]
  - Disease progression [Fatal]
